FAERS Safety Report 15858521 (Version 4)
Quarter: 2019Q1

REPORT INFORMATION
  Report Type: Spontaneous
  Country: US (occurrence: US)
  Receive Date: 20190123
  Receipt Date: 20190326
  Transmission Date: 20190417
  Serious: Yes (Other)
  Sender: FDA-Public Use
  Company Number: US-PFIZER INC-2019031832

PATIENT
  Age: 67 Year
  Sex: Female
  Weight: 64.41 kg

DRUGS (1)
  1. SUTENT [Suspect]
     Active Substance: SUNITINIB MALATE
     Indication: GASTROINTESTINAL STROMAL TUMOUR
     Dosage: 37.5 MG, 1X/DAY
     Route: 048

REACTIONS (6)
  - Skin disorder [Not Recovered/Not Resolved]
  - Inflammation [Unknown]
  - Blood cholesterol increased [Unknown]
  - Petechiae [Unknown]
  - Haemorrhage [Unknown]
  - Skin fissures [Unknown]

NARRATIVE: CASE EVENT DATE: 20190310
